FAERS Safety Report 11471266 (Version 2)
Quarter: 2015Q3

REPORT INFORMATION
  Report Type: Spontaneous
  Country: US (occurrence: US)
  Receive Date: 20150903
  Receipt Date: 20150903
  Transmission Date: 20151125
  Serious: No
  Sender: FDA-Public Use
  Company Number: US-ELI_LILLY_AND_COMPANY-US201112004193

PATIENT
  Sex: Male
  Weight: 129.25 kg

DRUGS (1)
  1. CYMBALTA [Suspect]
     Active Substance: DULOXETINE HYDROCHLORIDE
     Indication: PAIN
     Dosage: 60 MG, QD
     Dates: start: 20110828, end: 20110913

REACTIONS (5)
  - Pyrexia [Unknown]
  - Chromaturia [Unknown]
  - Urinary retention [Recovered/Resolved]
  - Headache [Unknown]
  - Back pain [Recovered/Resolved]
